FAERS Safety Report 8301191-2 (Version None)
Quarter: 2012Q2

REPORT INFORMATION
  Report Type: 
  Country: None (occurrence: None)
  Receive Date: 20120420
  Receipt Date: 20120412
  Transmission Date: 20120825
  Serious: Yes (Hospitalization, Other)
  Sender: FDA-Public Use
  Company Number: JP-VERTEX PHARMACEUTICALS INC.-AE-2012-001652

PATIENT
  Age: 69 Year
  Sex: Female

DRUGS (5)
  1. PEGINTERFERON ALFA-2B [Concomitant]
     Indication: HEPATITIS C
     Route: 051
     Dates: start: 20111208
  2. TELAVIC (TELAPREVIR) [Suspect]
     Indication: HEPATITIS C
     Route: 048
     Dates: start: 20111208, end: 20120301
  3. RIBAVIRIN [Concomitant]
     Indication: HEPATITIS C
     Route: 048
     Dates: start: 20111208, end: 20111227
  4. RIBAVIRIN [Concomitant]
     Route: 048
     Dates: start: 20111228
  5. RIBAVIRIN [Concomitant]
     Route: 048
     Dates: start: 20120112

REACTIONS (2)
  - ANAEMIA [None]
  - RASH [None]
